FAERS Safety Report 4760210-0 (Version None)
Quarter: 2005Q3

REPORT INFORMATION
  Report Type: 
  Country: None (occurrence: None)
  Receive Date: 20050902
  Receipt Date: 20050825
  Transmission Date: 20060218
  Serious: Yes (Hospitalization)
  Sender: FDA-Public Use
  Company Number: US-JNJFOC-20050806614

PATIENT
  Sex: Female
  Weight: 83.92 kg

DRUGS (15)
  1. DURAGESIC-100 [Suspect]
     Route: 062
     Dates: start: 20030101
  2. FUROSEMIDE [Concomitant]
     Route: 048
     Dates: start: 20030101
  3. FOLIC ACID [Concomitant]
     Route: 048
     Dates: start: 20030101
  4. FLUOXETINE [Concomitant]
     Route: 048
     Dates: start: 20030101
  5. CELEBREX [Concomitant]
     Route: 048
     Dates: start: 20030101
  6. DIGOXIN [Concomitant]
     Route: 048
     Dates: start: 20030101
  7. NITROFURANTOIN [Concomitant]
     Route: 048
     Dates: start: 20030101
  8. PREMARIN [Concomitant]
     Route: 048
     Dates: start: 20030101
  9. NEXIUM [Concomitant]
     Route: 048
     Dates: start: 20030101
  10. GABAPENTIN [Concomitant]
     Route: 048
     Dates: start: 20030101
  11. WARFARIN [Concomitant]
     Route: 048
  12. LORAZEPAM [Concomitant]
     Route: 048
  13. POTASSIUM [Concomitant]
     Route: 048
     Dates: start: 20030101
  14. LEVOTHYROXINE SODIUM [Concomitant]
     Route: 048
     Dates: start: 20030101
  15. CAPTOPRIL [Concomitant]
     Route: 048
     Dates: start: 20030101

REACTIONS (2)
  - CARDIAC FAILURE CONGESTIVE [None]
  - PNEUMONIA [None]
